FAERS Safety Report 11707327 (Version 1)
Quarter: 2015Q4

REPORT INFORMATION
  Report Type: Spontaneous
  Country: US (occurrence: US)
  Receive Date: 20151106
  Receipt Date: 20151106
  Transmission Date: 20160304
  Serious: Yes (Other)
  Sender: FDA-Public Use
  Company Number: PHHY2015US142954

PATIENT
  Age: 58 Year
  Sex: Male

DRUGS (1)
  1. IBUPROFEN. [Suspect]
     Active Substance: IBUPROFEN
     Indication: DRESSLER^S SYNDROME
     Dosage: 600 MG, TID
     Route: 065

REACTIONS (2)
  - Disease progression [Unknown]
  - Pleural effusion [Recovered/Resolved]
